FAERS Safety Report 6089355-2 (Version None)
Quarter: 2009Q1

REPORT INFORMATION
  Report Type: 
  Country: None (occurrence: None)
  Receive Date: 20090224
  Receipt Date: 20090219
  Transmission Date: 20090719
  Serious: Yes (Death, Other)
  Sender: FDA-Public Use
  Company Number: PHHY2009MX05593

PATIENT
  Sex: Male

DRUGS (1)
  1. TEGRETOL [Suspect]
     Indication: EPILEPSY
     Dosage: 200 MG, 3 TABLET PER DAY
     Route: 048
     Dates: start: 19950101

REACTIONS (5)
  - CHEMOTHERAPY [None]
  - METASTASIS [None]
  - RADIOTHERAPY TO THYROID [None]
  - THYROID CANCER [None]
  - THYROIDECTOMY [None]
